FAERS Safety Report 12942864 (Version 7)
Quarter: 2017Q4

REPORT INFORMATION
  Report Type: Report from Study
  Country: IT (occurrence: IT)
  Receive Date: 20161115
  Receipt Date: 20171020
  Transmission Date: 20180320
  Serious: Yes (Death, Hospitalization)
  Sender: FDA-Public Use
  Company Number: IT-PFIZER INC-2016395315

PATIENT
  Age: 68 Year
  Sex: Male
  Weight: 104 kg

DRUGS (7)
  1. BISOPROLOLO [Concomitant]
     Active Substance: BISOPROLOL FUMARATE
     Indication: HYPERTENSION
     Dosage: 1.25 MG, 2X/DAY
     Route: 048
     Dates: start: 201605
  2. CARDIOASPIRIN [Concomitant]
     Active Substance: ASPIRIN
     Indication: HYPERTENSION
     Dosage: 100 MG, 1X/DAY
     Route: 048
     Dates: start: 2011
  3. DESAMETASONE FOSF /00016010/ [Concomitant]
     Active Substance: DEXAMETHASONE PHOSPHATE
     Indication: DYSPNOEA
     Dosage: 1 MG, 1X/DAY
     Route: 048
     Dates: start: 20150720
  4. PREGABALIN. [Concomitant]
     Active Substance: PREGABALIN
     Indication: PAIN
     Dosage: 75 MG, 1X/DAY
     Route: 048
     Dates: start: 201601
  5. NICARDIPINE [Concomitant]
     Active Substance: NICARDIPINE
     Indication: HYPERTENSION
     Dosage: 20 MG, 1X/DAY
     Route: 048
     Dates: start: 2011
  6. LANSOPRAZOLE. [Concomitant]
     Active Substance: LANSOPRAZOLE
     Indication: PROPHYLAXIS
     Dosage: 30 MG, 1X/DAY
     Route: 048
     Dates: start: 20150821
  7. DOCETAXEL. [Suspect]
     Active Substance: DOCETAXEL
     Indication: NON-SMALL CELL LUNG CANCER
     Dosage: 75 MG/M2, CYCLIC(EVERY 3 WEEKS)
     Route: 042
     Dates: start: 20160720, end: 20160720

REACTIONS (3)
  - Mucosal inflammation [Fatal]
  - Leukopenia [Fatal]
  - Pyrexia [Fatal]

NARRATIVE: CASE EVENT DATE: 20160726
